FAERS Safety Report 16327358 (Version 2)
Quarter: 2019Q3

REPORT INFORMATION
  Report Type: Spontaneous
  Country: FR (occurrence: FR)
  Receive Date: 20190517
  Receipt Date: 20190719
  Transmission Date: 20191004
  Serious: Yes (Death, Life-Threatening)
  Sender: FDA-Public Use
  Company Number: FR-PURDUE PHARMA-GBR-2019-0066497

PATIENT
  Age: 37 Year
  Sex: Male
  Weight: 69 kg

DRUGS (2)
  1. OXYCONTIN [Suspect]
     Active Substance: OXYCODONE HYDROCHLORIDE
     Indication: TOXICITY TO VARIOUS AGENTS
     Dosage: (STRENGHT 120MG)
     Route: 048
     Dates: start: 20190409
  2. OXYCODONE HYDROCHLORIDE. [Suspect]
     Active Substance: OXYCODONE HYDROCHLORIDE
     Indication: TOXICITY TO VARIOUS AGENTS
     Dosage: UNK
     Route: 048
     Dates: start: 20190409

REACTIONS (8)
  - Hyperthermia malignant [Fatal]
  - Coma [Fatal]
  - Toxic leukoencephalopathy [Fatal]
  - Poisoning deliberate [Fatal]
  - Disseminated intravascular coagulation [Fatal]
  - Miosis [Fatal]
  - Pneumonia aspiration [Fatal]
  - Acute kidney injury [Fatal]

NARRATIVE: CASE EVENT DATE: 20190409
